FAERS Safety Report 11222166 (Version 1)
Quarter: 2015Q2

REPORT INFORMATION
  Report Type: Spontaneous
  Country: FR (occurrence: FR)
  Receive Date: 20150626
  Receipt Date: 20150626
  Transmission Date: 20150821
  Serious: Yes (Hospitalization)
  Sender: FDA-Public Use
  Company Number: PHHY2015FR077060

PATIENT
  Age: 65 Year
  Sex: Male

DRUGS (1)
  1. TEGRETOL [Suspect]
     Active Substance: CARBAMAZEPINE
     Indication: PRODUCT USED FOR UNKNOWN INDICATION
     Dosage: 60 DF, ONCE/SINGLE
     Route: 065
     Dates: start: 20150126

REACTIONS (4)
  - Hypothermia [Unknown]
  - Drug level above therapeutic [Unknown]
  - Hypertension [Unknown]
  - Mydriasis [Unknown]

NARRATIVE: CASE EVENT DATE: 20150126
